FAERS Safety Report 9856061 (Version 4)
Quarter: 2014Q1

REPORT INFORMATION
  Report Type: Spontaneous
  Country: GB (occurrence: GB)
  Receive Date: 20140130
  Receipt Date: 20140217
  Transmission Date: 20141002
  Serious: Yes (Hospitalization, Other)
  Sender: FDA-Public Use
  Company Number: PHFR2014GB000789

PATIENT
  Sex: Male

DRUGS (3)
  1. CLOZARIL [Suspect]
     Dosage: UNK
     Route: 048
     Dates: start: 20110621, end: 20140124
  2. CLOZARIL [Suspect]
     Dosage: UNK
     Dates: start: 20140204
  3. CLOZARIL [Suspect]
     Dosage: UNK

REACTIONS (3)
  - Schizophrenia [Not Recovered/Not Resolved]
  - Cellulitis [Recovered/Resolved]
  - Pyrexia [Recovered/Resolved]
